FAERS Safety Report 6661669-4 (Version None)
Quarter: 2010Q1

REPORT INFORMATION
  Report Type: 
  Country: None (occurrence: None)
  Receive Date: 20100331
  Receipt Date: 20090414
  Transmission Date: 20100710
  Serious: Yes (Hospitalization, Other)
  Sender: FDA-Public Use
  Company Number: US-BRISTOL-MYERS SQUIBB COMPANY-14576151

PATIENT
  Age: 38 Year
  Sex: Male

DRUGS (6)
  1. ERBITUX [Suspect]
     Indication: COLORECTAL CANCER METASTATIC
     Dosage: RECEIVED INFUSION FOR ABOUT 5 MINUTES,THEN REACTION OCCURED
     Route: 042
     Dates: start: 20090402, end: 20090402
  2. IRINOTECAN HYDROCHLORIDE [Concomitant]
     Indication: COLORECTAL CANCER METASTATIC
     Route: 042
     Dates: start: 20090402
  3. DIPHENHYDRAMINE HYDROCHLORIDE [Concomitant]
     Indication: PREMEDICATION
     Route: 042
     Dates: start: 20090402
  4. KYTRIL [Concomitant]
     Indication: PREMEDICATION
     Route: 042
     Dates: start: 20090402
  5. DEXAMETHASONE [Concomitant]
     Indication: PREMEDICATION
     Route: 042
     Dates: start: 20090402
  6. ATROPINE [Concomitant]
     Indication: PREMEDICATION
     Route: 042
     Dates: start: 20090402

REACTIONS (6)
  - HYPERSENSITIVITY [None]
  - MOUTH ULCERATION [None]
  - NAUSEA [None]
  - PAIN [None]
  - VOMITING [None]
  - WEIGHT DECREASED [None]
